FAERS Safety Report 9745405 (Version 1)
Quarter: 2013Q4

REPORT INFORMATION
  Report Type: Report from Study
  Country: MX (occurrence: MX)
  Receive Date: 20131211
  Receipt Date: 20131211
  Transmission Date: 20140711
  Serious: Yes (Other)
  Sender: FDA-Public Use
  Company Number: PHHY2013MX144344

PATIENT
  Age: 55 Year
  Sex: Female

DRUGS (4)
  1. ACLASTA [Suspect]
     Indication: OSTEOPOROSIS
     Dosage: 5 MG, UNK
     Route: 042
     Dates: start: 200801
  2. CALTRATE [Concomitant]
     Indication: OSTEOPOROSIS
     Dosage: 2 UKN, DAILY
  3. FOLIC ACID [Concomitant]
     Indication: BLOOD CALCIUM ABNORMAL
     Dosage: 400 MG (1 TABLET)
     Dates: start: 201009
  4. FOLIC ACID [Concomitant]
     Indication: ANAEMIA PROPHYLAXIS

REACTIONS (2)
  - Ankle fracture [Recovered/Resolved]
  - Fatigue [Recovered/Resolved]
